FAERS Safety Report 5127667-7 (Version None)
Quarter: 2006Q4

REPORT INFORMATION
  Report Type: 
  Country: None (occurrence: None)
  Receive Date: 20061016
  Receipt Date: 20060920
  Transmission Date: 20070319
  Serious: Yes (Hospitalization, Other)
  Sender: FDA-Public Use
  Company Number: JP-BAYER-200614164GDS

PATIENT
  Sex: Female

DRUGS (3)
  1. ADALAT [Suspect]
     Indication: PREGNANCY INDUCED HYPERTENSION
     Dosage: UNIT DOSE: 20 MG
     Route: 048
     Dates: start: 19991216
  2. ADALAT [Suspect]
     Dosage: TOTAL DAILY DOSE: 40 MG  UNIT DOSE: 20 MG
     Route: 048
     Dates: start: 19991214, end: 19991216
  3. MAGNESOL (MAGNESIUM/GLUCOSE) [Suspect]
     Indication: PREGNANCY INDUCED HYPERTENSION
     Route: 065
     Dates: start: 19991214, end: 19991216

REACTIONS (4)
  - BLOOD PRESSURE DECREASED [None]
  - CAESAREAN SECTION [None]
  - DRUG EXPOSURE DURING PREGNANCY [None]
  - FOETAL DISTRESS SYNDROME [None]
